FAERS Safety Report 15599440 (Version 3)
Quarter: 2019Q1

REPORT INFORMATION
  Report Type: Spontaneous
  Country: GB (occurrence: GB)
  Receive Date: 20181108
  Receipt Date: 20190102
  Transmission Date: 20190417
  Serious: Yes (Death, Other)
  Sender: FDA-Public Use
  Company Number: GB-PFIZER INC-2018453803

PATIENT
  Age: 83 Year
  Sex: Female
  Weight: 48.4 kg

DRUGS (27)
  1. DALTEPARIN SODIUM [Suspect]
     Active Substance: DALTEPARIN SODIUM
     Dosage: 12500 IU, DAILY
     Route: 058
     Dates: start: 20180924, end: 20180924
  2. MOVICOL [Concomitant]
     Active Substance: POLYETHYLENE GLYCOL 3350\POTASSIUM CHLORIDE\SODIUM BICARBONATE\SODIUM CHLORIDE
     Dosage: UNK
  3. HYOSCINE BUTYLBROMIDE [Concomitant]
     Active Substance: BUTYLSCOPOLAMINE
     Dosage: 20 MG, 1X/DAY
     Route: 058
     Dates: start: 20180926, end: 20180927
  4. LYRINEL XL [Concomitant]
     Active Substance: OXYBUTYNIN
     Dosage: UNK
  5. METOCLOPRAMIDE. [Concomitant]
     Active Substance: METOCLOPRAMIDE
     Indication: NAUSEA
     Dosage: 10 MG, UNK
     Route: 030
     Dates: start: 20180914, end: 20180922
  6. PARACETAMOL [Concomitant]
     Active Substance: ACETAMINOPHEN
     Indication: PAIN
     Dosage: 1 G, UNK
     Route: 042
     Dates: start: 20180921, end: 20180924
  7. HYOSCINE BUTYLBROMIDE [Concomitant]
     Active Substance: BUTYLSCOPOLAMINE
     Indication: LUNG DISORDER
     Dosage: 80 MG, 1X/DAY
     Route: 058
     Dates: start: 20180925, end: 20180925
  8. HEPARIN [Suspect]
     Active Substance: HEPARIN SODIUM
     Indication: PULMONARY EMBOLISM
     Dosage: 5000 IU, SINGLE
     Route: 042
     Dates: start: 20180923, end: 20180923
  9. AMOXICILLIN. [Concomitant]
     Active Substance: AMOXICILLIN
     Indication: URINARY TRACT INFECTION
     Dosage: 1500 MG, 1X/DAY
     Dates: start: 20180924, end: 20180924
  10. CIPROFLOXACIN. [Concomitant]
     Active Substance: CIPROFLOXACIN
     Indication: URINARY TRACT INFECTION
     Dosage: 1000 MG, 1X/DAY
     Route: 042
     Dates: start: 20180914, end: 20180917
  11. CIPROFLOXACIN. [Concomitant]
     Active Substance: CIPROFLOXACIN
     Dosage: 200 MG, UNK
     Route: 042
     Dates: start: 20180913
  12. NITROFURANTOIN. [Concomitant]
     Active Substance: NITROFURANTOIN
     Dosage: 200 MG, 1X/DAY
     Dates: start: 20180917, end: 20180917
  13. ONDANSETRON [Concomitant]
     Active Substance: ONDANSETRON
     Indication: NAUSEA
     Dosage: 4 MG, SINGLE
     Route: 042
     Dates: start: 20180923, end: 20180923
  14. CASSIA SENNA [Concomitant]
     Active Substance: HERBALS\SENNOSIDES
     Indication: CONSTIPATION
     Dosage: 10 ML, 1X/DAY
     Dates: start: 20180921, end: 20180922
  15. PHOSPHATE [Concomitant]
     Active Substance: UNSPECIFIED INGREDIENT
     Indication: CONSTIPATION
     Dosage: UNK
     Dates: start: 20180919
  16. NITROFURANTOIN. [Concomitant]
     Active Substance: NITROFURANTOIN
     Dosage: 100 MG, 1X/DAY
     Dates: start: 20180918, end: 20180918
  17. FUROSEMIDE. [Concomitant]
     Active Substance: FUROSEMIDE
     Dosage: UNK
  18. CO-AMOXICLAV [Concomitant]
     Active Substance: AMOXICILLIN\CLAVULANATE POTASSIUM
     Dosage: UNK
  19. MORPHINE SULFATE. [Concomitant]
     Active Substance: MORPHINE SULFATE
     Indication: PYREXIA
     Dosage: 5 MG, UNK
     Route: 058
     Dates: start: 20180923, end: 20180928
  20. DALTEPARIN SODIUM [Suspect]
     Active Substance: DALTEPARIN SODIUM
     Indication: PULMONARY EMBOLISM
     Dosage: 15000 IU, DAILY
     Route: 058
     Dates: start: 20180923, end: 20180923
  21. NITROFURANTOIN. [Concomitant]
     Active Substance: NITROFURANTOIN
     Indication: URINARY TRACT INFECTION
     Dosage: 400 MG, 1X/DAY
     Dates: start: 20180916
  22. PARACETAMOL [Concomitant]
     Active Substance: ACETAMINOPHEN
     Indication: PYREXIA
     Dosage: 1 G, AS NEEDED
     Route: 054
     Dates: start: 20180918
  23. PARACETAMOL [Concomitant]
     Active Substance: ACETAMINOPHEN
     Dosage: 1 G, UNK
     Route: 042
     Dates: start: 20180913
  24. TRIMETHOPRIM. [Concomitant]
     Active Substance: TRIMETHOPRIM
     Indication: URINARY TRACT INFECTION
     Dosage: ONLY SINGLE DOSES GIVEN ON 18,19, 20 AND 23RD
     Dates: start: 20180918, end: 20180924
  25. LEVOMEPROMAZINE [Concomitant]
     Active Substance: LEVOMEPROMAZINE
     Indication: NAUSEA
     Dosage: 6.25 MG, UNK
     Route: 058
     Dates: start: 20180924, end: 20180928
  26. MIDAZOLAM [Concomitant]
     Active Substance: MIDAZOLAM HYDROCHLORIDE
     Indication: AGITATION
     Dosage: 10 MG, SINGLE
     Route: 058
     Dates: start: 20180927, end: 20180927
  27. MIDAZOLAM [Concomitant]
     Active Substance: MIDAZOLAM HYDROCHLORIDE
     Dosage: FOUR DOSES ON 25TH, 2 DOSES 26TH, FOUR DOSES 27TH.
     Route: 058
     Dates: start: 20180925, end: 20180927

REACTIONS (2)
  - Haematemesis [Unknown]
  - Gastrointestinal haemorrhage [Fatal]

NARRATIVE: CASE EVENT DATE: 20180925
